FAERS Safety Report 10012921 (Version 2)
Quarter: 2014Q1

REPORT INFORMATION
  Report Type: Spontaneous
  Country: US (occurrence: US)
  Receive Date: 20140314
  Receipt Date: 20140314
  Transmission Date: 20141002
  Serious: Yes (Other)
  Sender: FDA-Public Use
  Company Number: US-PFIZER INC-2014043939

PATIENT
  Age: 49 Year
  Sex: Male
  Weight: 92.51 kg

DRUGS (14)
  1. ENBREL [Suspect]
     Indication: RHEUMATOID ARTHRITIS
     Dosage: 50 MG, QWK
     Route: 065
     Dates: start: 20130101, end: 20130617
  2. ENBREL [Suspect]
     Dosage: 50 MG, QWK
     Dates: start: 20130624, end: 2013
  3. ENBREL [Suspect]
     Dosage: 50 MG, QWK
     Dates: start: 2013, end: 201308
  4. CELEBREX [Suspect]
     Indication: RHEUMATOID ARTHRITIS
     Dosage: 200 MG, 1 CAPSULE WITH FOOD, ONCE A DAY, 30 DAYS
     Route: 048
  5. METHOTREXATE [Suspect]
     Indication: RHEUMATOID ARTHRITIS
     Dosage: 6 PILLS, 2.5MG EACH
  6. METHOTREXATE [Suspect]
     Dosage: 2.5MG, 6 TABLETS ONCE WEEKLY
     Route: 048
  7. METHOTREXATE [Suspect]
     Dosage: 2.5 MG, 5 TABLETS ONCE A WEEK
  8. METHOTREXATE [Suspect]
     Dosage: 2.5 MG, 3 TABLETS EACH WEEK WITH FOOD
     Route: 048
  9. PREDNISONE [Suspect]
     Indication: RHEUMATOID ARTHRITIS
     Dosage: 5 MG, DAILY LONG STANDING
     Route: 048
  10. PREDNISONE [Suspect]
     Dosage: 5 MG TABLETS AS DIRECTED 3 A DAY FOR 5 DAYS
  11. PREDNISONE [Suspect]
     Dosage: 5 MG TABLETS 2 A DAY FOR 5 DAYS
  12. BENAZEPRIL HCL [Concomitant]
     Dosage: 5 MG, DAILY
     Route: 048
  13. ADVAIR [Concomitant]
     Dosage: 250/50 AEROSOL POWDER PUFF DAILY
  14. DEPOMEDROL [Concomitant]
     Dosage: 40 MG, UNK
     Dates: start: 20130416

REACTIONS (46)
  - Synovitis [Unknown]
  - Condition aggravated [Unknown]
  - Joint range of motion decreased [Unknown]
  - Injection site reaction [Unknown]
  - Injection site erythema [Recovered/Resolved]
  - Injection site swelling [Recovered/Resolved]
  - Injection site induration [Unknown]
  - Drug ineffective [Unknown]
  - Paraesthesia [Unknown]
  - Infection [Unknown]
  - Aspartate aminotransferase increased [Unknown]
  - Rheumatoid arthritis [Unknown]
  - Foot deformity [Unknown]
  - Laceration [Unknown]
  - Erythema [Unknown]
  - Local swelling [Unknown]
  - Feeling hot [Unknown]
  - Skin fissures [Not Recovered/Not Resolved]
  - Nodule [Not Recovered/Not Resolved]
  - Headache [Unknown]
  - Immunology test abnormal [Unknown]
  - Fatigue [Unknown]
  - Insomnia [Unknown]
  - Asthenia [Unknown]
  - Depressed mood [Unknown]
  - Cough [Recovered/Resolved]
  - Abdominal pain [Unknown]
  - Contusion [Unknown]
  - Rash generalised [Recovered/Resolved]
  - Solar dermatitis [Recovered/Resolved]
  - Pain [Unknown]
  - Mobility decreased [Unknown]
  - Activities of daily living impaired [Unknown]
  - Pain in extremity [Unknown]
  - Gait disturbance [Unknown]
  - Exercise tolerance decreased [Unknown]
  - Wound secretion [Unknown]
  - Diarrhoea [Unknown]
  - Rash [Recovered/Resolved]
  - Musculoskeletal stiffness [Unknown]
  - Joint stiffness [Unknown]
  - Arthralgia [Unknown]
  - Back pain [Unknown]
  - Hypoaesthesia [Unknown]
  - Raynaud^s phenomenon [Unknown]
  - Joint swelling [Unknown]
